FAERS Safety Report 22540139 (Version 1)
Quarter: 2023Q2

REPORT INFORMATION
  Report Type: Spontaneous
  Country: US (occurrence: US)
  Receive Date: 20230609
  Receipt Date: 20230609
  Transmission Date: 20230721
  Serious: Yes (Hospitalization, Other)
  Sender: FDA-Public Use
  Company Number: US-APOTEX-2023AP008645

PATIENT
  Age: 56 Year
  Sex: Female

DRUGS (2)
  1. LENALIDOMIDE [Suspect]
     Active Substance: LENALIDOMIDE
     Indication: Follicular lymphoma
     Dosage: UNK
     Route: 065
  2. TAFASITAMAB [Concomitant]
     Active Substance: TAFASITAMAB
     Indication: Follicular lymphoma
     Dosage: UNK
     Route: 065

REACTIONS (1)
  - Erythema multiforme [Recovered/Resolved]
